FAERS Safety Report 20723378 (Version 2)
Quarter: 2022Q2

REPORT INFORMATION
  Report Type: Spontaneous
  Country: RS (occurrence: None)
  Receive Date: 20220419
  Receipt Date: 20220520
  Transmission Date: 20220721
  Serious: Yes (Death, Other)
  Sender: FDA-Public Use
  Company Number: RS-ROCHE-3076339

PATIENT
  Age: 43 Year
  Sex: Female

DRUGS (3)
  1. CAPECITABINE [Suspect]
     Active Substance: CAPECITABINE
     Indication: Colorectal cancer
     Route: 048
  2. BEVACIZUMAB [Suspect]
     Active Substance: BEVACIZUMAB
     Indication: Colorectal cancer
     Route: 065
  3. LEVOTHYROXINE SODIUM [Concomitant]
     Active Substance: LEVOTHYROXINE SODIUM
     Route: 048
     Dates: start: 2010

REACTIONS (3)
  - Metastases to lung [Unknown]
  - Cardiac arrest [Fatal]
  - Colorectal cancer [Fatal]

NARRATIVE: CASE EVENT DATE: 20170801
